FAERS Safety Report 8990320 (Version 1)
Quarter: 2012Q4

REPORT INFORMATION
  Report Type: 
  Country: US (occurrence: US)
  Receive Date: 20121228
  Receipt Date: 20121228
  Transmission Date: 20130627
  Serious: Yes (Other)
  Sender: FDA-Public Use
  Company Number: US-ABBOTT-12P-163-1026473-00

PATIENT
  Sex: Male

DRUGS (2)
  1. LUPRON DEPOT [Suspect]
     Indication: PRODUCT USED FOR UNKNOWN INDICATION
  2. XTANDI [Suspect]
     Indication: PROSTATE CANCER
     Dosage: 160mg QD
     Route: 048
     Dates: start: 20121005

REACTIONS (6)
  - Dysphagia [Unknown]
  - Dizziness [Unknown]
  - Confusional state [Unknown]
  - Memory impairment [Unknown]
  - Hot flush [Unknown]
  - Balance disorder [Unknown]
